FAERS Safety Report 21618378 (Version 1)
Quarter: 2022Q4

REPORT INFORMATION
  Report Type: Report from Study
  Country: AR (occurrence: AR)
  Receive Date: 20221119
  Receipt Date: 20221119
  Transmission Date: 20230112
  Serious: Yes (Hospitalization)
  Sender: FDA-Public Use
  Company Number: AR-002147023-NVSC2022AR260353

PATIENT
  Age: 71 Year
  Sex: Female

DRUGS (2)
  1. DIOVAN [Suspect]
     Active Substance: VALSARTAN
     Indication: Hypertension
     Dosage: 160 MG, QD, (BY MOUTH)
     Route: 048
     Dates: start: 2007
  2. DIOVAN [Suspect]
     Active Substance: VALSARTAN
     Dosage: UNK, (BY MOUTH) (DOSE INCREASED HALF A TABLET MORE AT NIGHT)
     Route: 048

REACTIONS (5)
  - Cerebrovascular accident [Unknown]
  - Memory impairment [Unknown]
  - Cognitive disorder [Unknown]
  - Muscular weakness [Unknown]
  - Wrong technique in product usage process [Unknown]

NARRATIVE: CASE EVENT DATE: 20220711
